FAERS Safety Report 9717216 (Version 3)
Quarter: 2014Q1

REPORT INFORMATION
  Report Type: Spontaneous
  Country: FI (occurrence: FI)
  Receive Date: 20131127
  Receipt Date: 20140108
  Transmission Date: 20141002
  Serious: Yes (Other)
  Sender: FDA-Public Use
  Company Number: FI-PFIZER INC-2013332286

PATIENT
  Age: 39 Year
  Sex: Female

DRUGS (2)
  1. SALAZOPYRIN EN [Suspect]
     Indication: ARTHRITIS REACTIVE
     Dosage: 500 MG, 2X/DAY
     Route: 048
     Dates: start: 201311
  2. PARA-TABS [Concomitant]

REACTIONS (8)
  - White blood cell count decreased [Not Recovered/Not Resolved]
  - Haematuria [Not Recovered/Not Resolved]
  - Vascular headache [Not Recovered/Not Resolved]
  - Eye pain [Not Recovered/Not Resolved]
  - Pyrexia [Not Recovered/Not Resolved]
  - Fatigue [Not Recovered/Not Resolved]
  - Neck pain [Not Recovered/Not Resolved]
  - Musculoskeletal stiffness [Unknown]
